FAERS Safety Report 9075530 (Version 1)
Quarter: 2013Q1

REPORT INFORMATION
  Report Type: Spontaneous
  Country: FR (occurrence: FR)
  Receive Date: 20130131
  Receipt Date: 20130131
  Transmission Date: 20140127
  Serious: Yes (Hospitalization, Other)
  Sender: FDA-Public Use
  Company Number: FR-ABBOTT-13P-056-1041802-00

PATIENT
  Age: 54 None
  Sex: Male

DRUGS (5)
  1. NORVIR [Suspect]
     Indication: HIV INFECTION
     Route: 048
  2. TAZOCILLINE [Suspect]
     Indication: PRODUCT USED FOR UNKNOWN INDICATION
     Route: 042
  3. SUSTIVA [Suspect]
     Indication: HIV INFECTION
     Route: 048
  4. REYATAZ [Suspect]
     Indication: HIV INFECTION
     Route: 048
  5. KIVEXA [Suspect]
     Indication: HIV INFECTION
     Route: 048

REACTIONS (7)
  - Plasmablastic lymphoma [Unknown]
  - Bone marrow transplant [Unknown]
  - Convulsion [Recovered/Resolved]
  - Convulsion [Recovered/Resolved]
  - Convulsion [Not Recovered/Not Resolved]
  - Renal failure [Unknown]
  - Pyrexia [Unknown]
